FAERS Safety Report 16364085 (Version 1)
Quarter: 2019Q2

REPORT INFORMATION
  Report Type: Spontaneous
  Country: JP (occurrence: JP)
  Receive Date: 20190528
  Receipt Date: 20190528
  Transmission Date: 20190711
  Serious: Yes (Hospitalization, Other)
  Sender: FDA-Public Use
  Company Number: JP-PFIZER INC-2019076227

PATIENT
  Age: 75 Year
  Sex: Female

DRUGS (4)
  1. AMLODIPINE [Concomitant]
     Active Substance: AMLODIPINE BESYLATE
     Dosage: UNK
  2. HYALONSAN [Concomitant]
     Indication: DRY EYE
     Dosage: UNK UNK, 4X/DAY
     Dates: start: 20091127, end: 20170320
  3. TOVIAZ [Suspect]
     Active Substance: FESOTERODINE FUMARATE
     Indication: POLLAKIURIA
     Dosage: 4 MG, DAILY
     Dates: start: 20180119
  4. DIQUAS [Concomitant]
     Active Substance: DIQUAFOSOL TETRASODIUM
     Indication: DRY EYE
     Dosage: FOUR-SIX TIMES DAILY
     Dates: start: 20170530

REACTIONS (3)
  - Vertigo positional [Unknown]
  - Sudden hearing loss [Not Recovered/Not Resolved]
  - Dizziness [Recovering/Resolving]

NARRATIVE: CASE EVENT DATE: 201809
